FAERS Safety Report 16983895 (Version 2)
Quarter: 2019Q4

REPORT INFORMATION
  Report Type: Spontaneous
  Country: US (occurrence: US)
  Receive Date: 20191101
  Receipt Date: 20191105
  Transmission Date: 20200122
  Serious: Yes (Other)
  Sender: FDA-Public Use
  Company Number: US-PFIZER INC-2019470526

PATIENT
  Age: 26 Year
  Sex: Female

DRUGS (5)
  1. METHOTREXATE SODIUM. [Suspect]
     Active Substance: METHOTREXATE SODIUM
     Indication: METASTATIC CHORIOCARCINOMA
     Dosage: UNK, CYCLIC
     Dates: start: 2017
  2. ACTINOMYCIN D [Suspect]
     Active Substance: DACTINOMYCIN
     Indication: METASTATIC CHORIOCARCINOMA
     Dosage: UNK UNK, CYCLIC
     Dates: start: 2017
  3. CYCLOPHOSPHAMIDE. [Suspect]
     Active Substance: CYCLOPHOSPHAMIDE
     Indication: METASTATIC CHORIOCARCINOMA
     Dosage: UNK UNK, CYCLIC
     Dates: start: 2017
  4. VINCRISTINE SULFATE. [Suspect]
     Active Substance: VINCRISTINE SULFATE
     Indication: METASTATIC CHORIOCARCINOMA
     Dosage: UNK UNK, CYCLIC
     Dates: start: 2017
  5. ETOPOSIDE. [Suspect]
     Active Substance: ETOPOSIDE
     Indication: METASTATIC CHORIOCARCINOMA
     Dosage: UNK UNK, CYCLIC
     Dates: start: 2017

REACTIONS (2)
  - Neutropenia [Unknown]
  - Thrombocytopenia [Unknown]

NARRATIVE: CASE EVENT DATE: 2017
